FAERS Safety Report 6744692-0 (Version None)
Quarter: 2010Q2

REPORT INFORMATION
  Report Type: 
  Country: None (occurrence: None)
  Receive Date: 20100527
  Receipt Date: 20100519
  Transmission Date: 20101027
  Serious: Yes (Hospitalization, Other)
  Sender: FDA-Public Use
  Company Number: AU-TYCO HEALTHCARE/MALLINCKRODT-T201001273

PATIENT
  Age: 35 Year
  Sex: Female

DRUGS (5)
  1. FLUOXETINE [Suspect]
     Indication: DEPRESSION
     Dosage: 80 MG, Q AM
  2. ACUPHASE [Suspect]
     Indication: PSYCHOTIC BEHAVIOUR
     Dosage: 100 MG, SINGLE
     Route: 030
  3. QUETIAPINE [Suspect]
     Dosage: 1500 MG
  4. QUETIAPINE [Suspect]
     Dosage: 4 DOSES OF 100 MG
  5. NITRAZEPAM [Suspect]
     Dosage: 375 MG

REACTIONS (6)
  - DRUG INTERACTION [None]
  - DYSPNOEA [None]
  - DYSTONIA [None]
  - OVERDOSE [None]
  - SPASMODIC DYSPHONIA [None]
  - STRIDOR [None]
